FAERS Safety Report 12983767 (Version 3)
Quarter: 2016Q4

REPORT INFORMATION
  Report Type: Spontaneous
  Country: PL (occurrence: PL)
  Receive Date: 20161129
  Receipt Date: 20161220
  Transmission Date: 20170207
  Serious: Yes (Life-Threatening, Hospitalization, Disabling)
  Sender: FDA-Public Use
  Company Number: PL-SYNTHON BV-NL01PV16_42487

PATIENT
  Age: 78 Year
  Sex: Male

DRUGS (3)
  1. THEOPHYLLINE [Suspect]
     Active Substance: THEOPHYLLINE ANHYDROUS
     Dosage: 4.5 G (30 X 150 MG)
     Route: 048
  2. ZOLPIDEM [Suspect]
     Active Substance: ZOLPIDEM\ZOLPIDEM TARTRATE
     Dosage: 200 MG (20 X 10 MG)
     Route: 048
  3. DIGOXIN. [Suspect]
     Active Substance: DIGOXIN
     Dosage: 7.5 MG (30 X 0.25 MG)
     Route: 048

REACTIONS (10)
  - Cognitive disorder [Recovered/Resolved]
  - Electrocardiogram ST-T segment depression [Recovered/Resolved]
  - Suicide attempt [Recovered/Resolved]
  - Overdose [Recovered/Resolved]
  - Myocardial infarction [Recovered/Resolved]
  - Aggression [Recovered/Resolved]
  - Dementia [Recovered/Resolved]
  - Hypotension [Recovered/Resolved]
  - Pneumonia [Recovered/Resolved]
  - Tachyarrhythmia [Recovered/Resolved]
